FAERS Safety Report 9440061 (Version 1)
Quarter: 2013Q3

REPORT INFORMATION
  Report Type: Spontaneous
  Country: GB (occurrence: GB)
  Receive Date: 20130805
  Receipt Date: 20130805
  Transmission Date: 20140515
  Serious: Yes (Other)
  Sender: FDA-Public Use
  Company Number: GB-ASTELLAS-2013EU005822

PATIENT
  Sex: Male
  Weight: 71 kg

DRUGS (2)
  1. VESICARE [Suspect]
     Indication: HYPERTONIC BLADDER
     Dosage: 5 MG, UNKNOWN/D
     Route: 065
  2. VESICARE [Suspect]
     Indication: HYPERTONIC BLADDER
     Dosage: 10 MG, UNKNOWN/D
     Route: 065

REACTIONS (4)
  - Drug ineffective [Unknown]
  - Vision blurred [Unknown]
  - Posterior capsule opacification [Unknown]
  - Device material opacification [Unknown]
